FAERS Safety Report 21706248 (Version 1)
Quarter: 2022Q4

REPORT INFORMATION
  Report Type: Report from Study
  Country: US (occurrence: None)
  Receive Date: 20221209
  Receipt Date: 20221209
  Transmission Date: 20230113
  Serious: Yes (Hospitalization)
  Sender: FDA-Public Use
  Company Number: US-Eisai Medical Research-EC-2022-127909

PATIENT
  Age: 75 Year
  Sex: Female

DRUGS (1)
  1. LENVIMA [Suspect]
     Active Substance: LENVATINIB
     Indication: Endometrial cancer
     Route: 048
     Dates: start: 20221103, end: 20221128

REACTIONS (6)
  - Dyspnoea [Unknown]
  - Asthenia [Unknown]
  - Blood magnesium decreased [Unknown]
  - Blood potassium decreased [Unknown]
  - Muscle spasms [Unknown]
  - Nausea [Unknown]

NARRATIVE: CASE EVENT DATE: 20221101
